FAERS Safety Report 7314304-6 (Version None)
Quarter: 2011Q1

REPORT INFORMATION
  Report Type: 
  Country: None (occurrence: None)
  Receive Date: 20110225
  Receipt Date: 20100827
  Transmission Date: 20110831
  Serious: No
  Sender: FDA-Public Use
  Company Number: US-MYLANLABS-2010S1012617

PATIENT
  Age: 32 Year
  Sex: Female
  Weight: 54.43 kg

DRUGS (4)
  1. AMNESTEEM [Suspect]
     Route: 048
     Dates: start: 20100804
  2. AMNESTEEM [Suspect]
     Indication: ACNE
     Route: 048
     Dates: start: 20100708
  3. YASMIN [Concomitant]
  4. AMNESTEEM [Suspect]
     Route: 048
     Dates: end: 20100803

REACTIONS (1)
  - HEADACHE [None]
